FAERS Safety Report 22619620 (Version 1)
Quarter: 2023Q2

REPORT INFORMATION
  Report Type: Spontaneous
  Country: US (occurrence: None)
  Receive Date: 20230616
  Receipt Date: 20230616
  Transmission Date: 20230722
  Serious: Yes (Life-Threatening, Hospitalization, Disabling)
  Sender: FDA-Public Use
  Company Number: None

PATIENT
  Age: 53 Year
  Sex: Male
  Weight: 85.5 kg

DRUGS (2)
  1. BUPROPION [Suspect]
     Active Substance: BUPROPION
     Indication: Depression
     Dosage: 1 TABLET DAILY ORAL
     Route: 048
     Dates: start: 20230404, end: 20230602
  2. ASPIRIN [Concomitant]
     Active Substance: ASPIRIN

REACTIONS (5)
  - Orchitis [None]
  - Lymphoma [None]
  - Orchidectomy [None]
  - Testicular pain [None]
  - Testicular swelling [None]

NARRATIVE: CASE EVENT DATE: 20230602
